FAERS Safety Report 9097804 (Version 2)
Quarter: 2013Q3

REPORT INFORMATION
  Report Type: Spontaneous
  Country: US (occurrence: US)
  Receive Date: 20130212
  Receipt Date: 20130709
  Transmission Date: 20140515
  Serious: Yes (Other)
  Sender: FDA-Public Use
  Company Number: US-BRISTOL-MYERS SQUIBB COMPANY-17339607

PATIENT
  Age: 44 Year
  Sex: Female
  Weight: 122.45 kg

DRUGS (2)
  1. ABATACEPT SUBQ INJECTION 125MG/ML [Suspect]
     Indication: RHEUMATOID ARTHRITIS
     Route: 058
     Dates: start: 201207
  2. SULFASALAZINE [Concomitant]

REACTIONS (2)
  - Surgery [Unknown]
  - Helicobacter test positive [Unknown]
